FAERS Safety Report 4895435-7 (Version None)
Quarter: 2006Q1

REPORT INFORMATION
  Report Type: 
  Country: None (occurrence: None)
  Receive Date: 20060130
  Receipt Date: 20050512
  Transmission Date: 20060701
  Serious: No
  Sender: FDA-Public Use
  Company Number: 2005/000309

PATIENT
  Sex: Male

DRUGS (3)
  1. EPIVIR [Suspect]
     Indication: HIV INFECTION
     Route: 065
  2. TENOFOVIR [Suspect]
  3. TRUVADA [Suspect]

REACTIONS (2)
  - MYALGIA [None]
  - WEIGHT DECREASED [None]
